FAERS Safety Report 19209812 (Version 2)
Quarter: 2021Q3

REPORT INFORMATION
  Report Type: Spontaneous
  Country: US (occurrence: US)
  Receive Date: 20210504
  Receipt Date: 20210908
  Transmission Date: 20211014
  Serious: No
  Sender: FDA-Public Use
  Company Number: US-FARMAPROD-202103-0332

PATIENT
  Sex: Female

DRUGS (8)
  1. OXERVATE [Suspect]
     Active Substance: CENEGERMIN-BKBJ
     Indication: NEUROTROPHIC KERATOPATHY
     Route: 047
     Dates: start: 20210210, end: 202104
  2. AMPICILLIN SODIUM. [Concomitant]
     Active Substance: AMPICILLIN SODIUM
     Dosage: VIAL
  3. OXERVATE [Suspect]
     Active Substance: CENEGERMIN-BKBJ
  4. ERYTHROMYCIN. [Concomitant]
     Active Substance: ERYTHROMYCIN
  5. PRED FORTE [Concomitant]
     Active Substance: PREDNISOLONE ACETATE
     Dosage: DROPS SUSPENSION
  6. ALLOPURINOL. [Concomitant]
     Active Substance: ALLOPURINOL
  7. SIMVASTATIN. [Concomitant]
     Active Substance: SIMVASTATIN
  8. REFRESH CELLUVISC [Concomitant]
     Active Substance: CARBOXYMETHYLCELLULOSE SODIUM

REACTIONS (4)
  - Drug ineffective [Unknown]
  - Eye pain [Unknown]
  - Vision blurred [Unknown]
  - Eye pruritus [Unknown]
